FAERS Safety Report 18984636 (Version 1)
Quarter: 2021Q1

REPORT INFORMATION
  Report Type: Spontaneous
  Country: US (occurrence: US)
  Receive Date: 20210308
  Receipt Date: 20210308
  Transmission Date: 20210420
  Serious: No
  Sender: FDA-Public Use
  Company Number: US-PARAPRO-2020PP000008

PATIENT

DRUGS (1)
  1. NATROBA [Suspect]
     Active Substance: SPINOSAD
     Indication: LICE INFESTATION
     Dosage: UNK UNK, ONCE
     Route: 061
     Dates: start: 202001

REACTIONS (1)
  - Alopecia [Not Recovered/Not Resolved]

NARRATIVE: CASE EVENT DATE: 202001
